FAERS Safety Report 17456052 (Version 1)
Quarter: 2020Q1

REPORT INFORMATION
  Report Type: Spontaneous
  Country: US (occurrence: US)
  Receive Date: 20200225
  Receipt Date: 20200225
  Transmission Date: 20200409
  Serious: Yes (Hospitalization, Other)
  Sender: FDA-Public Use
  Company Number: None

PATIENT
  Age: 62 Year
  Sex: Male
  Weight: 70.3 kg

DRUGS (1)
  1. TISAGENLECLEUCEL. [Suspect]
     Active Substance: TISAGENLECLEUCEL
     Indication: DIFFUSE LARGE B-CELL LYMPHOMA
     Dosage: ?          OTHER FREQUENCY:ONCE;?
     Route: 042
     Dates: start: 20200114, end: 20200114

REACTIONS (5)
  - B-cell unclassifiable lymphoma low grade [None]
  - Malignant neoplasm progression [None]
  - Cytokine release syndrome [None]
  - Infusion related reaction [None]
  - Groin pain [None]

NARRATIVE: CASE EVENT DATE: 20200115
